FAERS Safety Report 14858607 (Version 1)
Quarter: 2018Q2

REPORT INFORMATION
  Report Type: Spontaneous
  Country: FR (occurrence: FR)
  Receive Date: 20180508
  Receipt Date: 20180508
  Transmission Date: 20180711
  Serious: Yes (Other)
  Sender: FDA-Public Use
  Company Number: FR-MERCK KGAA-2047371

PATIENT
  Sex: Female

DRUGS (4)
  1. NOVOTHYROX [Suspect]
     Active Substance: LEVOTHYROXINE SODIUM
     Indication: POST PROCEDURAL HYPOTHYROIDISM
     Dates: start: 2011
  2. LEVOTHYROX 25 NF [Suspect]
     Active Substance: LEVOTHYROXINE SODIUM
     Dates: start: 2017
  3. LEVOTHYROX [Suspect]
     Active Substance: LEVOTHYROXINE
  4. LEVOTHYROX [Suspect]
     Active Substance: LEVOTHYROXINE
     Dates: start: 2011

REACTIONS (5)
  - Fatigue [Not Recovered/Not Resolved]
  - Thyroid function test abnormal [None]
  - Hyperthyroidism [None]
  - Blood pressure decreased [Not Recovered/Not Resolved]
  - Diarrhoea [Not Recovered/Not Resolved]
